FAERS Safety Report 13116759 (Version 1)
Quarter: 2017Q1

REPORT INFORMATION
  Report Type: Spontaneous
  Country: US (occurrence: US)
  Receive Date: 20170116
  Receipt Date: 20170116
  Transmission Date: 20170428
  Serious: No
  Sender: FDA-Public Use
  Company Number: US-BAYER-2017-002834

PATIENT
  Age: 48 Year
  Sex: Female
  Weight: 45.35 kg

DRUGS (2)
  1. MIRALAX [Suspect]
     Active Substance: POLYETHYLENE GLYCOL 3350
     Indication: GASTROINTESTINAL DISORDER
     Dosage: 1 DF, UNK
     Route: 048
     Dates: end: 20170104
  2. ONE A DAY WOMEN^S GUMMIES [Concomitant]
     Dosage: UNK

REACTIONS (3)
  - Product contamination physical [Unknown]
  - Intentional product use issue [Unknown]
  - Product use issue [Unknown]
